FAERS Safety Report 5725526-X (Version None)
Quarter: 2008Q2

REPORT INFORMATION
  Report Type: 
  Country: None (occurrence: None)
  Receive Date: 20080501
  Receipt Date: 20080421
  Transmission Date: 20081010
  Serious: Yes (Other)
  Sender: FDA-Public Use
  Company Number: US-JNJFOC-20080406217

PATIENT
  Sex: Female
  Weight: 58.06 kg

DRUGS (9)
  1. FENTANYL CITRATE [Suspect]
     Dosage: 2X 25UG/HR PATCHES, ALTERNATING DAYS TO CHANGE THE PATCHES
     Route: 062
  2. FENTANYL CITRATE [Suspect]
     Route: 062
  3. FENTANYL CITRATE [Suspect]
     Indication: BACK PAIN
     Route: 062
  4. NOVOLIN [Concomitant]
     Indication: DIABETES MELLITUS
     Dosage: 0.9 UNITS
     Route: 058
  5. ACYCLOVIR [Concomitant]
     Indication: HERPES ZOSTER
     Route: 042
  6. PHENERGAN [Concomitant]
     Indication: IMPAIRED GASTRIC EMPTYING
     Route: 042
  7. SYNTHROID [Concomitant]
     Indication: THYROID DISORDER
     Route: 048
  8. VICODIN [Concomitant]
     Indication: PAIN
     Dosage: AS NEEDED
     Route: 048
  9. XANAX [Concomitant]
     Indication: ANXIETY
     Route: 048

REACTIONS (3)
  - BLOOD GLUCOSE DECREASED [None]
  - CONVULSION [None]
  - DIZZINESS [None]
